FAERS Safety Report 18010635 (Version 1)
Quarter: 2020Q3

REPORT INFORMATION
  Report Type: Spontaneous
  Country: US (occurrence: US)
  Receive Date: 20200710
  Receipt Date: 20200710
  Transmission Date: 20201103
  Serious: Yes (Other)
  Sender: FDA-Public Use
  Company Number: US-BAUSCH-BL-2020-018944

PATIENT
  Age: 58 Year
  Sex: Male

DRUGS (4)
  1. OMEPRAZOLE AND SODIUM BICARBONATE POWDER FOR ORAL SUSPENSION [Suspect]
     Active Substance: OMEPRAZOLE\SODIUM BICARBONATE
     Indication: HIATUS HERNIA
     Dosage: ONE PACKET ONCE DAILY IN THE MORNING (40 MG)
     Route: 048
     Dates: start: 2020
  2. INSULIN [Suspect]
     Active Substance: INSULIN NOS
     Indication: PRODUCT USED FOR UNKNOWN INDICATION
     Route: 065
     Dates: end: 2020
  3. ZEGERID [Suspect]
     Active Substance: OMEPRAZOLE\SODIUM BICARBONATE
     Indication: HIATUS HERNIA
     Route: 065
     Dates: end: 202005
  4. INSULIN [Suspect]
     Active Substance: INSULIN NOS
     Dosage: CHANGED TO A DIFFERENT INSULIN PUMP
     Route: 065
     Dates: start: 2020

REACTIONS (3)
  - Product substitution issue [Unknown]
  - Blood glucose increased [Unknown]
  - Insurance issue [Unknown]

NARRATIVE: CASE EVENT DATE: 2020
